FAERS Safety Report 11210174 (Version 1)
Quarter: 2015Q2

REPORT INFORMATION
  Report Type: Spontaneous
  Country: US (occurrence: US)
  Receive Date: 20150622
  Receipt Date: 20150622
  Transmission Date: 20150821
  Serious: No
  Sender: FDA-Public Use
  Company Number: US-ASTELLAS-2015US007349

PATIENT
  Sex: Female

DRUGS (1)
  1. VESICARE [Suspect]
     Active Substance: SOLIFENACIN SUCCINATE
     Indication: PRODUCT USED FOR UNKNOWN INDICATION
     Route: 065
     Dates: start: 20150304

REACTIONS (5)
  - Eye pain [Unknown]
  - Lacrimation increased [Unknown]
  - Dizziness [Unknown]
  - Somnolence [Unknown]
  - Pruritus [Unknown]

NARRATIVE: CASE EVENT DATE: 20150305
